FAERS Safety Report 8856961 (Version 1)
Quarter: 2012Q4

REPORT INFORMATION
  Report Type: Spontaneous
  Country: US (occurrence: None)
  Receive Date: 20121023
  Receipt Date: 20121023
  Transmission Date: 20130627
  Serious: Yes (Hospitalization)
  Sender: FDA-Public Use
  Company Number: None

PATIENT
  Age: 57 Year
  Sex: Male

DRUGS (3)
  1. PEGASYS [Suspect]
     Indication: HEPATITIS C
     Route: 058
     Dates: start: 20120416, end: 20121010
  2. PROCRIT [Concomitant]
  3. RIBAPAK [Concomitant]

REACTIONS (4)
  - Chills [None]
  - Nausea [None]
  - Vomiting [None]
  - Bacteraemia [None]
